FAERS Safety Report 18350919 (Version 1)
Quarter: 2020Q4

REPORT INFORMATION
  Report Type: Spontaneous
  Country: PL (occurrence: PL)
  Receive Date: 20201006
  Receipt Date: 20201006
  Transmission Date: 20210114
  Serious: Yes (Life-Threatening)
  Sender: FDA-Public Use
  Company Number: PL-CELGENEUS-POL-20201000797

PATIENT
  Age: 61 Year
  Sex: Male
  Weight: 102 kg

DRUGS (2)
  1. ABRAXANE [Suspect]
     Active Substance: PACLITAXEL
     Indication: OFF LABEL USE
  2. ABRAXANE [Suspect]
     Active Substance: PACLITAXEL
     Indication: MALIGNANT NEOPLASM OF RENAL PELVIS
     Route: 042
     Dates: start: 20200103, end: 20200103

REACTIONS (1)
  - Neutropenia [Recovered/Resolved]

NARRATIVE: CASE EVENT DATE: 20200117
